FAERS Safety Report 15373019 (Version 5)
Quarter: 2019Q2

REPORT INFORMATION
  Report Type: Spontaneous
  Country: US (occurrence: US)
  Receive Date: 20180912
  Receipt Date: 20190617
  Transmission Date: 20190711
  Serious: Yes (Hospitalization)
  Sender: FDA-Public Use
  Company Number: US-PHARMING-PHAUS2018000586

PATIENT

DRUGS (9)
  1. AZITHROMYCIN ANHYDROUS. [Concomitant]
     Active Substance: AZITHROMYCIN ANHYDROUS
  2. RUCONEST [Suspect]
     Active Substance: HUMAN C1-ESTERASE INHIBITOR
     Indication: HEREDITARY ANGIOEDEMA
     Dosage: 4200 IU, AS NEEDED
     Route: 042
     Dates: start: 20180904
  3. ZYRTEC [Concomitant]
     Active Substance: CETIRIZINE HYDROCHLORIDE
  4. DIPHENHYDRAMINE. [Concomitant]
     Active Substance: DIPHENHYDRAMINE
  5. PRENATAL [Concomitant]
     Active Substance: VITAMINS
  6. EPINEPHRINE. [Concomitant]
     Active Substance: EPINEPHRINE
  7. HEPARIN [Concomitant]
     Active Substance: HEPARIN SODIUM
  8. SODIUM CHLORIDE. [Concomitant]
     Active Substance: SODIUM CHLORIDE
  9. HAEGARDA [Concomitant]
     Active Substance: HUMAN C1-ESTERASE INHIBITOR
     Dosage: UNK
     Dates: start: 2017

REACTIONS (3)
  - Vascular access complication [Unknown]
  - Exposure during pregnancy [Recovered/Resolved]
  - Vein rupture [Unknown]

NARRATIVE: CASE EVENT DATE: 201808
